FAERS Safety Report 22235875 (Version 1)
Quarter: 2023Q2

REPORT INFORMATION
  Report Type: Spontaneous
  Country: US (occurrence: US)
  Receive Date: 20230420
  Receipt Date: 20230420
  Transmission Date: 20230721
  Serious: No
  Sender: FDA-Public Use
  Company Number: US-TRIS PHARMA, INC.-23US010832

PATIENT

DRUGS (3)
  1. DYANAVEL XR [Suspect]
     Active Substance: AMPHETAMINE
     Indication: Product used for unknown indication
     Dosage: 10 MILLIGRAM,
  2. DYANAVEL XR [Suspect]
     Active Substance: AMPHETAMINE
     Dosage: 5 MILLIGRAM,
  3. DYANAVEL XR [Suspect]
     Active Substance: AMPHETAMINE
     Dosage: 2.5 MILLIGRAM,

REACTIONS (2)
  - Dyspnoea [Recovered/Resolved]
  - Rash [Recovered/Resolved]
